FAERS Safety Report 13104486 (Version 1)
Quarter: 2017Q1

REPORT INFORMATION
  Report Type: Spontaneous
  Country: US (occurrence: US)
  Receive Date: 20170110
  Receipt Date: 20170110
  Transmission Date: 20170428
  Serious: Yes (Hospitalization)
  Sender: FDA-Public Use
  Company Number: None

PATIENT
  Age: 38 Year
  Sex: Female

DRUGS (1)
  1. RISPERIDAL [Suspect]
     Active Substance: RISPERIDONE
     Indication: PANIC REACTION

REACTIONS (3)
  - Blood prolactin abnormal [None]
  - Lactation disorder [None]
  - Mania [None]

NARRATIVE: CASE EVENT DATE: 20170110
